FAERS Safety Report 22064156 (Version 1)
Quarter: 2023Q1

REPORT INFORMATION
  Report Type: Spontaneous
  Country: US (occurrence: US)
  Receive Date: 20230306
  Receipt Date: 20230306
  Transmission Date: 20230418
  Serious: Yes (Other)
  Sender: FDA-Public Use
  Company Number: US-SA-SAC20230303001342

PATIENT
  Age: 11 Year
  Sex: Male

DRUGS (2)
  1. ELOCTATE [Suspect]
     Active Substance: EFMOROCTOCOG ALFA
     Indication: Factor VIII deficiency
     Dosage: 2790 IU, Q4D (INFUSE 2790 UNITS (2511-3069) SLOW IV PUSH EVERY 4TH DAY FOR PROPHYLAXIS)
     Route: 042
     Dates: start: 202301
  2. ELOCTATE [Suspect]
     Active Substance: EFMOROCTOCOG ALFA
     Indication: Factor VIII deficiency
     Dosage: 2790 IU, Q4D (INFUSE 2790 UNITS (2511-3069) SLOW IV PUSH EVERY 4TH DAY FOR PROPHYLAXIS)
     Route: 042
     Dates: start: 202301

REACTIONS (1)
  - Haemorrhage [Recovered/Resolved]

NARRATIVE: CASE EVENT DATE: 20230101
